FAERS Safety Report 5281283-5 (Version None)
Quarter: 2007Q1

REPORT INFORMATION
  Report Type: 
  Country: None (occurrence: None)
  Receive Date: 20061221
  Receipt Date: 20060910
  Transmission Date: 20070707
  Serious: No
  Sender: FDA-Public Use
  Company Number: SP00976

PATIENT
  Age: 51 Year
  Sex: Male
  Weight: 77.1115 kg

DRUGS (2)
  1. XIFAXAN [Suspect]
     Indication: GASTROINTESTINAL DISORDER
     Dosage: 400 MG/BID, ORAL
     Route: 048
     Dates: start: 20060907, end: 20060909
  2. XIFAXAN [Suspect]
     Indication: OVERGROWTH BACTERIAL
     Dosage: 400 MG/BID, ORAL
     Route: 048
     Dates: start: 20060907, end: 20060909

REACTIONS (2)
  - DIARRHOEA [None]
  - ENERGY INCREASED [None]
